FAERS Safety Report 6784526-1 (Version None)
Quarter: 2010Q2

REPORT INFORMATION
  Report Type: 
  Country: None (occurrence: None)
  Receive Date: 20100622
  Receipt Date: 20100622
  Transmission Date: 20101027
  Serious: Yes (Hospitalization, Other)
  Sender: FDA-Public Use
  Company Number: US-ABBOTT-10P-163-0629577-00

PATIENT
  Sex: Female
  Weight: 69.916 kg

DRUGS (21)
  1. HUMIRA [Suspect]
     Indication: COLITIS ULCERATIVE
     Route: 058
     Dates: start: 20080403, end: 20091110
  2. METFORMIN [Concomitant]
     Indication: DIABETES MELLITUS
     Dates: start: 20070101
  3. METHOTREXATE [Concomitant]
     Indication: COLITIS ULCERATIVE
     Route: 048
     Dates: start: 20080101, end: 20080101
  4. UNKNOWN CANCER DRIP MEDICATION [Concomitant]
     Indication: COLITIS ULCERATIVE
  5. PREDNISONE [Concomitant]
     Indication: COLITIS ULCERATIVE
     Dosage: USING MEDICATION OFF AND ON
     Dates: end: 20091103
  6. CANASA SUPPOSITORIES [Concomitant]
     Indication: COLITIS ULCERATIVE
     Route: 054
     Dates: end: 20090101
  7. AMITRIPTYLINE [Concomitant]
     Indication: FIBROMYALGIA
  8. VICODIN [Concomitant]
     Indication: FIBROMYALGIA
  9. KLONOPIN [Concomitant]
     Indication: ANXIETY
  10. XANAX [Concomitant]
     Indication: DRUG USE FOR UNKNOWN INDICATION
  11. ZANAFLEX [Concomitant]
     Indication: MYALGIA
     Dosage: 3 TO 6 PILLS DAILY, AS NEEDED
     Route: 048
  12. LIALDA [Concomitant]
     Indication: FIBROMYALGIA
     Dates: start: 20100101
  13. ADVAIR DISKUS 100/50 [Concomitant]
     Indication: ASTHMA
  14. ACE INHIBITOR NOS [Concomitant]
     Indication: DRUG USE FOR UNKNOWN INDICATION
  15. LISINOPRIL [Concomitant]
     Indication: DRUG USE FOR UNKNOWN INDICATION
     Dosage: DAILY
  16. LISINOPRIL [Concomitant]
     Dosage: DAILY
  17. DIOVAN [Concomitant]
     Indication: DRUG USE FOR UNKNOWN INDICATION
  18. HYDRODORE [Concomitant]
     Indication: DRUG USE FOR UNKNOWN INDICATION
  19. ALPRAZELAM [Concomitant]
     Indication: DRUG USE FOR UNKNOWN INDICATION
  20. TIZAIDIZE [Concomitant]
     Indication: DRUG USE FOR UNKNOWN INDICATION
  21. LEVSIN [Concomitant]
     Indication: DRUG USE FOR UNKNOWN INDICATION

REACTIONS (26)
  - ABASIA [None]
  - ABDOMINAL PAIN LOWER [None]
  - ANAEMIA [None]
  - AORTIC ELONGATION [None]
  - ASTHENIA [None]
  - ATELECTASIS [None]
  - BLOOD CREATINE PHOSPHOKINASE INCREASED [None]
  - COLITIS ULCERATIVE [None]
  - COUGH [None]
  - FALL [None]
  - FREQUENT BOWEL MOVEMENTS [None]
  - HAEMATOCHEZIA [None]
  - HYPERSOMNIA [None]
  - HYPERTENSION [None]
  - INTERSTITIAL LUNG DISEASE [None]
  - LUNG INFILTRATION [None]
  - LUNG NEOPLASM [None]
  - LYMPHADENOPATHY MEDIASTINAL [None]
  - MALNUTRITION [None]
  - OBLITERATIVE BRONCHIOLITIS [None]
  - PNEUMONIA [None]
  - PULMONARY FIBROSIS [None]
  - PULMONARY GRANULOMA [None]
  - RESTRICTIVE PULMONARY DISEASE [None]
  - RHABDOMYOLYSIS [None]
  - SPINAL OSTEOARTHRITIS [None]
